FAERS Safety Report 21788987 (Version 2)
Quarter: 2025Q1

REPORT INFORMATION
  Report Type: Report from Study
  Country: MA (occurrence: MA)
  Receive Date: 20221228
  Receipt Date: 20250207
  Transmission Date: 20250408
  Serious: Yes (Other)
  Sender: ROCHE
  Company Number: MA-ROCHE-3250286

PATIENT

DRUGS (4)
  1. TOCILIZUMAB [Suspect]
     Active Substance: TOCILIZUMAB
     Indication: COVID-19 pneumonia
     Route: 065
  2. METHYLPREDNISOLONE [Suspect]
     Active Substance: METHYLPREDNISOLONE
     Indication: COVID-19 pneumonia
     Route: 065
  3. DEXAMETHASONE [Suspect]
     Active Substance: DEXAMETHASONE
     Indication: COVID-19 pneumonia
     Route: 065
  4. HYDROCORTISONE [Suspect]
     Active Substance: HYDROCORTISONE
     Indication: COVID-19 pneumonia
     Route: 065

REACTIONS (15)
  - Off label use [Unknown]
  - Pneumonia staphylococcal [Unknown]
  - Staphylococcus test positive [Unknown]
  - Haemophilus infection [Unknown]
  - Pneumonia [Unknown]
  - Klebsiella infection [Unknown]
  - Proteus infection [Unknown]
  - Enterobacter pneumonia [Unknown]
  - Pneumonia pseudomonal [Unknown]
  - Pneumonia proteus [Unknown]
  - Pneumonia serratia [Unknown]
  - Stenotrophomonas maltophilia pneumonia [Unknown]
  - Pneumonia klebsiella [Unknown]
  - Acinetobacter infection [Unknown]
  - Staphylococcal infection [Unknown]
